FAERS Safety Report 8866364 (Version 1)
Quarter: 2012Q4

REPORT INFORMATION
  Report Type: 
  Country: IT (occurrence: FR)
  Receive Date: 20121025
  Receipt Date: 20121025
  Transmission Date: 20130627
  Serious: Yes (Hospitalization)
  Sender: FDA-Public Use
  Company Number: FR-FRI-1000039720

PATIENT
  Age: 30 Year
  Sex: Female

DRUGS (6)
  1. FOSFOMYCIN [Suspect]
     Indication: CYSTITIS
     Dosage: 3 g
     Route: 048
     Dates: start: 20110704, end: 20110704
  2. ZECLAR [Suspect]
     Indication: ODYNOPHAGIA
     Dosage: 1000 mg
     Route: 048
     Dates: start: 20110702, end: 20110707
  3. SOLUMEDROL(METHYLPREDNISOLONE SODIUM SUCCINATE) INFUSION [Suspect]
     Route: 030
     Dates: start: 20110703, end: 20110703
  4. PREDNISOLONE [Suspect]
     Route: 048
     Dates: start: 20110704
  5. LORATADINE [Suspect]
     Route: 048
     Dates: start: 20110702
  6. PARACETAMOL AND CODEINE [Suspect]
     Indication: PYREXIA
     Route: 048
     Dates: start: 20110704

REACTIONS (2)
  - Lip oedema [Recovered/Resolved]
  - Rash maculo-papular [Recovered/Resolved]
